FAERS Safety Report 8510498-5 (Version None)
Quarter: 2012Q3

REPORT INFORMATION
  Report Type: 
  Country: None (occurrence: None)
  Receive Date: 20120716
  Receipt Date: 20120703
  Transmission Date: 20120928
  Serious: Yes (Hospitalization, Other)
  Sender: FDA-Public Use
  Company Number: FR-BRISTOL-MYERS SQUIBB COMPANY-16742736

PATIENT
  Age: 81 Year
  Sex: Male

DRUGS (14)
  1. NICARDIPINE HCL [Suspect]
     Route: 048
     Dates: start: 20070101
  2. ATORVASTATIN [Suspect]
     Dosage: TAHOR 10 MG, FILM-COATED TABLET
  3. CODEINE PHOSPHATE AND ACETAMINOPHEN [Suspect]
     Dosage: CODOLIPRANE ADULTS, SCORED TABLET
  4. SOTALOL HCL [Suspect]
     Route: 048
     Dates: start: 20090101
  5. NABUMETONE [Suspect]
     Dosage: NABUCOX 500 MG (500 MG TWICE DAILY (1-0-1) FROM 1-2 YEARS),
     Dates: start: 20100101
  6. RABEPRAZOLE SODIUM [Suspect]
     Dosage: GASTRO-RESISTANT TABLET (RABEPRAZOLE)
     Dates: start: 20100101
  7. AVODART [Suspect]
     Dosage: 0.5 MG, SOFT CAPSULE (DUTASTERIDE
  8. IRBESARTAN AND HYDROCHLOROTHIAZIDE [Suspect]
     Dosage: COAPROVEL 300 MG/25 MG, FILM-COATED TABLET (IRBESARTAN / HYDROCHLOROTHIAZIDE)  FROM 5-6 YEARS
     Dates: start: 20060101
  9. IBUPROFEN [Suspect]
  10. METFORMIN HCL [Suspect]
     Dosage: METFORMIN HYDROCHLORIDE 500 UNIUTS NOS (2 TABLETS DAILY (1-0-1)),
  11. PIASCLEDINE [Suspect]
     Dosage: PIASCLEDINE 300 MG, CAPSULE PIASCLEDINE 300 MG (2-3 TABLETS DAILY
     Dates: start: 20070101
  12. MIRTAZAPINE [Suspect]
     Indication: DEPRESSION
     Route: 048
     Dates: start: 20120102, end: 20120204
  13. ATARAX [Suspect]
  14. ZOPICLONE [Suspect]

REACTIONS (3)
  - PAIN IN EXTREMITY [None]
  - OEDEMA [None]
  - INSOMNIA [None]
